FAERS Safety Report 20188992 (Version 3)
Quarter: 2022Q1

REPORT INFORMATION
  Report Type: Report from Study
  Country: US (occurrence: US)
  Receive Date: 20211215
  Receipt Date: 20220307
  Transmission Date: 20220424
  Serious: Yes (Other)
  Sender: FDA-Public Use
  Company Number: US-ABBVIE-21K-163-4165595-00

PATIENT
  Sex: Male
  Weight: 83.082 kg

DRUGS (6)
  1. VENCLEXTA [Suspect]
     Active Substance: VENETOCLAX
     Indication: Acute myeloid leukaemia
     Route: 048
     Dates: start: 20211016, end: 2021
  2. VENCLEXTA [Suspect]
     Active Substance: VENETOCLAX
     Route: 048
  3. VENCLEXTA [Suspect]
     Active Substance: VENETOCLAX
     Dosage: DOSE INCREASED
     Route: 048
  4. VENCLEXTA [Suspect]
     Active Substance: VENETOCLAX
     Route: 048
     Dates: start: 20220131
  5. VENCLEXTA [Suspect]
     Active Substance: VENETOCLAX
     Route: 048
     Dates: end: 20211119
  6. VENCLEXTA [Suspect]
     Active Substance: VENETOCLAX
     Dosage: INCREASING BY 100 MG DAILY ON A WEEKLY BASIS TILL 400 MG PER DAY
     Route: 048
     Dates: start: 20220201

REACTIONS (10)
  - Loss of consciousness [Recovered/Resolved]
  - Stem cell transplant [Unknown]
  - Depressed mood [Recovering/Resolving]
  - Ageusia [Recovered/Resolved]
  - Sexual dysfunction [Unknown]
  - Pain [Recovered/Resolved]
  - Fall [Recovered/Resolved]
  - Paraesthesia [Recovering/Resolving]
  - Dizziness [Recovered/Resolved]
  - Diarrhoea [Recovered/Resolved]

NARRATIVE: CASE EVENT DATE: 20210101
